FAERS Safety Report 12540681 (Version 2)
Quarter: 2016Q3

REPORT INFORMATION
  Report Type: Spontaneous
  Country: US (occurrence: US)
  Receive Date: 20160708
  Receipt Date: 20160830
  Transmission Date: 20161109
  Serious: Yes (Other)
  Sender: FDA-Public Use
  Company Number: US-TEVA-654702USA

PATIENT
  Sex: Female

DRUGS (1)
  1. ZECUITY [Suspect]
     Active Substance: SUMATRIPTAN SUCCINATE
     Indication: HEADACHE
     Route: 062

REACTIONS (9)
  - Product leakage [Unknown]
  - Application site swelling [Recovered/Resolved]
  - Application site papules [Unknown]
  - Application site burn [Unknown]
  - Application site discolouration [Unknown]
  - Application site irritation [Unknown]
  - Incorrect drug administration duration [Recovered/Resolved]
  - Application site pruritus [Unknown]
  - Application site erythema [Unknown]
